FAERS Safety Report 20718074 (Version 1)
Quarter: 2022Q2

REPORT INFORMATION
  Report Type: Other
  Country: US (occurrence: None)
  Receive Date: 20220418
  Receipt Date: 20220418
  Transmission Date: 20220721
  Serious: Yes (Hospitalization)
  Sender: FDA-Public Use
  Company Number: US-ROCHE-3076685

PATIENT
  Sex: Male

DRUGS (1)
  1. OCREVUS [Suspect]
     Active Substance: OCRELIZUMAB
     Indication: Relapsing multiple sclerosis
     Dosage: 300 MG AT DAY 0 AND 15, THEN 600 MG EVERY 6 MONTH, DATE OF TREATMENT: 17/NOV/2021, 03/NOV/2021
     Route: 042
     Dates: start: 20211103

REACTIONS (2)
  - Intestinal perforation [Unknown]
  - Diverticulitis [Unknown]
